FAERS Safety Report 9320114 (Version 2)
Quarter: 2013Q3

REPORT INFORMATION
  Report Type: Spontaneous
  Country: CA (occurrence: CA)
  Receive Date: 20130530
  Receipt Date: 20130819
  Transmission Date: 20140515
  Serious: Yes (Hospitalization, Other)
  Sender: FDA-Public Use
  Company Number: CA-BAXTER-2013BAX011516

PATIENT
  Sex: Female

DRUGS (6)
  1. DIANEAL PD4 SOLUTION WITH 1.5% DEXTROSE AND 2.5 MEQ/L CALCIUM [Suspect]
     Indication: PERITONEAL DIALYSIS
     Route: 033
     Dates: start: 20130311
  2. DIANEAL PD4 SOLUTION WITH 2.5% DEXTROSE AND 2.5 MEQ/L CALCIUM [Suspect]
     Indication: PERITONEAL DIALYSIS
     Route: 033
     Dates: start: 201206, end: 20130311
  3. DIANEAL PD 101 SOLUTION WITH 0.5% DEXTROSE [Suspect]
     Indication: PERITONEAL DIALYSIS
     Route: 033
     Dates: start: 20130311
  4. EXTRANEAL [Suspect]
     Indication: PERITONEAL DIALYSIS
     Route: 033
     Dates: start: 201206, end: 20130311
  5. HEPARIN [Concomitant]
     Indication: FIBRIN
     Route: 033
  6. SODIUM BICARBONATE [Concomitant]
     Indication: PRODUCT USED FOR UNKNOWN INDICATION
     Route: 033

REACTIONS (14)
  - Pneumonia [Unknown]
  - Peritonitis [Recovered/Resolved]
  - Peritonitis [Recovered/Resolved with Sequelae]
  - Insomnia [Unknown]
  - Aphagia [Unknown]
  - Nutritional condition abnormal [Unknown]
  - Retching [Unknown]
  - Underweight [Unknown]
  - Decreased appetite [Unknown]
  - Constipation [Recovered/Resolved]
  - Vomiting [Recovered/Resolved]
  - Pain [Unknown]
  - Procedural pain [Unknown]
  - Discomfort [Unknown]
